FAERS Safety Report 7006418-5 (Version None)
Quarter: 2010Q3

REPORT INFORMATION
  Report Type: 
  Country: None (occurrence: None)
  Receive Date: 20100921
  Receipt Date: 20100913
  Transmission Date: 20110219
  Serious: Yes (Other)
  Sender: FDA-Public Use
  Company Number: PT-AMGEN-QUU438519

PATIENT
  Sex: Female
  Weight: 70.4 kg

DRUGS (7)
  1. ENBREL [Suspect]
     Indication: PSORIATIC ARTHROPATHY
     Route: 058
     Dates: start: 20080310, end: 20100721
  2. METHOTREXATE [Concomitant]
     Dosage: UNKNOWN
     Route: 048
  3. PREDNISOLONE [Concomitant]
     Dosage: 1 UNIT DOSE DAILY
     Route: 048
  4. CALCIUM [Concomitant]
     Dosage: 1200 MG EVERY
     Route: 048
  5. DICLOFENAC SODIUM [Concomitant]
     Dosage: 1 UNIT DOSE DAILY
     Route: 048
  6. FOLIC ACID [Concomitant]
     Dosage: UNKNOWN
     Route: 048
  7. PANTOPRAZOLE [Concomitant]

REACTIONS (1)
  - GASTRIC CANCER [None]
